FAERS Safety Report 6731912-1 (Version None)
Quarter: 2010Q2

REPORT INFORMATION
  Report Type: 
  Country: None (occurrence: None)
  Receive Date: 20100519
  Receipt Date: 20100517
  Transmission Date: 20101027
  Serious: Yes (Hospitalization)
  Sender: FDA-Public Use
  Company Number: AE-ROXANE LABORATORIES, INC.-2010-RO-00580RO

PATIENT
  Age: 14 Year
  Sex: Male

DRUGS (6)
  1. CYCLOPHOSPHAMIDE [Suspect]
     Indication: MEDULLOBLASTOMA
  2. VINCRISTINE [Suspect]
     Indication: MEDULLOBLASTOMA
  3. VINCRISTINE [Suspect]
  4. CARBOPLATIN [Suspect]
     Indication: MEDULLOBLASTOMA
  5. MESNA [Suspect]
     Indication: MEDULLOBLASTOMA
  6. GRANULOCYTE COLONY-STIMULATING FACTOR [Suspect]
     Indication: MEDULLOBLASTOMA

REACTIONS (1)
  - VENOOCCLUSIVE LIVER DISEASE [None]
